FAERS Safety Report 18518497 (Version 3)
Quarter: 2021Q1

REPORT INFORMATION
  Report Type: Spontaneous
  Country: US (occurrence: US)
  Receive Date: 20201118
  Receipt Date: 20210107
  Transmission Date: 20210419
  Serious: Yes (Other)
  Sender: FDA-Public Use
  Company Number: US-009507513-2011USA009930

PATIENT
  Sex: Male

DRUGS (2)
  1. FOSAMAX [Suspect]
     Active Substance: ALENDRONATE SODIUM
     Indication: OSTEONECROSIS
     Dosage: 70 MILLIGRAM
     Route: 048
     Dates: start: 202008, end: 20201023
  2. PERCOCET [Concomitant]
     Active Substance: ACETAMINOPHEN\OXYCODONE HYDROCHLORIDE
     Indication: PAIN
     Dosage: UNK

REACTIONS (4)
  - Intracranial aneurysm [Unknown]
  - Pain in extremity [Not Recovered/Not Resolved]
  - Cardiac disorder [Unknown]
  - Bone prosthesis insertion [Unknown]

NARRATIVE: CASE EVENT DATE: 2020
